FAERS Safety Report 5960166 (Version 24)
Quarter: 2014Q4

REPORT INFORMATION
  Report Type: Spontaneous
  Country: US (occurrence: US)
  Receive Date: 20050307
  Receipt Date: 20141216
  Transmission Date: 20150529
  Serious: Yes (Hospitalization, Disabling, Other)
  Sender: FDA-Public Use
  Company Number: US-ROCHE-396709

PATIENT
  Age: 19 Year
  Sex: Female
  Weight: 54.4 kg

DRUGS (2)
  1. ACCUTANE [Suspect]
     Active Substance: ISOTRETINOIN
     Indication: ACNE
     Route: 048
     Dates: start: 19990730, end: 199909
  2. ACCUTANE [Suspect]
     Active Substance: ISOTRETINOIN
     Route: 048
     Dates: start: 19991029, end: 20000526

REACTIONS (32)
  - Major depression [Unknown]
  - Pouchitis [Unknown]
  - Nausea [Unknown]
  - Intestinal haemorrhage [Unknown]
  - Rectal haemorrhage [Unknown]
  - Lip dry [Recovering/Resolving]
  - Renal disorder [Unknown]
  - Colitis [Unknown]
  - Crohn^s disease [Unknown]
  - Fatigue [Unknown]
  - Suicidal ideation [Unknown]
  - Haematochezia [Unknown]
  - Internal injury [Unknown]
  - Gastrointestinal disorder [Unknown]
  - Colitis ulcerative [Not Recovered/Not Resolved]
  - Vomiting [Unknown]
  - Dehydration [Unknown]
  - Nephrolithiasis [Unknown]
  - Ovarian cyst [Unknown]
  - Anal inflammation [Unknown]
  - Gastrointestinal stoma complication [Unknown]
  - Acne [Recovering/Resolving]
  - Dry skin [Recovering/Resolving]
  - Rash [Recovered/Resolved]
  - Decreased appetite [Unknown]
  - Diarrhoea [Unknown]
  - Pyrexia [Unknown]
  - Urine output decreased [Unknown]
  - Inflammatory bowel disease [Unknown]
  - Abdominal pain [Unknown]
  - Dyspepsia [Unknown]
  - Blood cholesterol increased [Recovered/Resolved]

NARRATIVE: CASE EVENT DATE: 19991203
